FAERS Safety Report 4733058-0 (Version None)
Quarter: 2005Q3

REPORT INFORMATION
  Report Type: 
  Country: None (occurrence: None)
  Receive Date: 20050803
  Receipt Date: 20050706
  Transmission Date: 20060218
  Serious: Yes (Hospitalization)
  Sender: FDA-Public Use
  Company Number: PHEH2005US07528

PATIENT

DRUGS (10)
  1. ENABLEX [Suspect]
     Dates: start: 20050629, end: 20050705
  2. LANOXIN [Concomitant]
  3. COUMADIN [Concomitant]
  4. FLOVENT [Concomitant]
  5. COMBIVENT                               /GFR/ [Concomitant]
  6. EULEXIN [Concomitant]
     Dosage: 125 MG, QD
  7. TOPROL-XL [Concomitant]
     Dosage: 50 MG, QD
  8. ELAVIL [Concomitant]
     Dosage: 25 MG, QD
  9. LASIX [Concomitant]
     Dosage: 20 MG, QD
  10. POTASSIUM CHLORIDE [Concomitant]
     Dosage: 20 MEQ, QD

REACTIONS (2)
  - MACULAR DEGENERATION [None]
  - VISION BLURRED [None]
